FAERS Safety Report 23539819 (Version 4)
Quarter: 2024Q1

REPORT INFORMATION
  Report Type: Spontaneous
  Country: US (occurrence: US)
  Receive Date: 20240219
  Receipt Date: 20240307
  Transmission Date: 20240410
  Serious: Yes (Other)
  Sender: FDA-Public Use
  Company Number: US-KYOWAKIRIN-2024KK002165

PATIENT

DRUGS (2)
  1. DARBEPOETIN ALFA [Suspect]
     Active Substance: DARBEPOETIN ALFA
     Indication: Von Hippel-Lindau disease
     Dosage: UNK
     Route: 065
  2. BELZUTIFAN [Suspect]
     Active Substance: BELZUTIFAN
     Indication: Von Hippel-Lindau disease
     Dosage: 120 MILLIGRAM, QD (ORALLY ONCE DAILY)
     Route: 048

REACTIONS (3)
  - Anaemia [Unknown]
  - Anaemia [Unknown]
  - Adverse event [Unknown]
